FAERS Safety Report 11796658 (Version 1)
Quarter: 2015Q4

REPORT INFORMATION
  Report Type: Spontaneous
  Country: CA (occurrence: CA)
  Receive Date: 20151203
  Receipt Date: 20151203
  Transmission Date: 20160305
  Serious: Yes (Other)
  Sender: FDA-Public Use
  Company Number: CA-GLAXOSMITHKLINE-CA2015GSK171055

PATIENT
  Age: 82 Year
  Sex: Male
  Weight: 84 kg

DRUGS (1)
  1. AVODART [Suspect]
     Active Substance: DUTASTERIDE
     Indication: URINE FLOW DECREASED
     Dosage: 0.5 MG, 1D
     Route: 048

REACTIONS (3)
  - Mental impairment [Unknown]
  - Disturbance in attention [Unknown]
  - Dizziness [Unknown]
